FAERS Safety Report 6379279-5 (Version None)
Quarter: 2009Q3

REPORT INFORMATION
  Report Type: 
  Country: None (occurrence: None)
  Receive Date: 20090928
  Receipt Date: 20090918
  Transmission Date: 20100115
  Serious: Yes (Hospitalization, Other)
  Sender: FDA-Public Use
  Company Number: US-ASTRAZENECA-2009SE14036

PATIENT
  Age: 34 Year
  Sex: Female

DRUGS (9)
  1. NEXIUM [Suspect]
     Indication: GASTROOESOPHAGEAL REFLUX DISEASE
     Route: 048
     Dates: start: 20020101, end: 20090701
  2. BUSPIRONE HCL [Suspect]
     Indication: ANXIETY
     Route: 048
     Dates: start: 20090501, end: 20090601
  3. BUSPIRONE HCL [Suspect]
     Indication: PANIC ATTACK
     Route: 048
     Dates: start: 20090501, end: 20090601
  4. BUSPIRONE HCL [Suspect]
     Dosage: LESS THAN 1 MG/DAILY, HALF OF A QUARTER OF A 5MG PILL
     Route: 048
     Dates: start: 20090701, end: 20090801
  5. BUSPIRONE HCL [Suspect]
     Dosage: LESS THAN 1 MG/DAILY, HALF OF A QUARTER OF A 5MG PILL
     Route: 048
     Dates: start: 20090701, end: 20090801
  6. BUSPIRONE HCL [Suspect]
     Route: 048
     Dates: start: 20090827, end: 20090909
  7. BUSPIRONE HCL [Suspect]
     Route: 048
     Dates: start: 20090827, end: 20090909
  8. BUSPIRONE HCL [Suspect]
     Route: 048
     Dates: start: 20090910
  9. BUSPIRONE HCL [Suspect]
     Route: 048
     Dates: start: 20090910

REACTIONS (12)
  - ANAEMIA [None]
  - BURNING SENSATION [None]
  - CONDITION AGGRAVATED [None]
  - DIZZINESS [None]
  - DRUG INEFFECTIVE [None]
  - DYSPNOEA [None]
  - GASTRIC PH INCREASED [None]
  - MUSCLE TWITCHING [None]
  - ORTHOSTATIC HYPOTENSION [None]
  - OXYGEN SATURATION DECREASED [None]
  - PANIC ATTACK [None]
  - SYNCOPE [None]
